FAERS Safety Report 15553787 (Version 1)
Quarter: 2018Q4

REPORT INFORMATION
  Report Type: Spontaneous
  Country: US (occurrence: US)
  Receive Date: 20181026
  Receipt Date: 20181026
  Transmission Date: 20190205
  Serious: Yes (Other)
  Sender: FDA-Public Use
  Company Number: US-SA-2018SA293502

PATIENT
  Age: 55 Year
  Sex: Male

DRUGS (4)
  1. FISH OIL [Concomitant]
     Active Substance: FISH OIL
  2. ASPIRIN 81 [Concomitant]
     Active Substance: ASPIRIN
  3. VITAMIN D [COLECALCIFEROL] [Concomitant]
  4. PRALUENT [Suspect]
     Active Substance: ALIROCUMAB
     Indication: HYPERLIPIDAEMIA
     Dosage: 75 MG, QOW
     Route: 058
     Dates: start: 201808

REACTIONS (2)
  - Inguinal hernia [Unknown]
  - Inguinal hernia repair [Unknown]

NARRATIVE: CASE EVENT DATE: 20181012
